FAERS Safety Report 16961243 (Version 2)
Quarter: 2019Q4

REPORT INFORMATION
  Report Type: Report from Study
  Country: SG (occurrence: SG)
  Receive Date: 20191025
  Receipt Date: 20191029
  Transmission Date: 20200122
  Serious: Yes (Death)
  Sender: FDA-Public Use
  Company Number: SG-ASTRAZENECA-2019SF50348

PATIENT
  Age: 23839 Day
  Sex: Female

DRUGS (1)
  1. TAGRISSO [Suspect]
     Active Substance: OSIMERTINIB
     Indication: NON-SMALL CELL LUNG CANCER
     Route: 048
     Dates: start: 20190408, end: 20191011

REACTIONS (1)
  - Death [Fatal]

NARRATIVE: CASE EVENT DATE: 20191011
